FAERS Safety Report 9458699 (Version 4)
Quarter: 2013Q4

REPORT INFORMATION
  Report Type: Spontaneous
  Country: FR (occurrence: FR)
  Receive Date: 20130814
  Receipt Date: 20131022
  Transmission Date: 20140711
  Serious: Yes (Hospitalization)
  Sender: FDA-Public Use
  Company Number: FR-ASTRAZENECA-2013SE62517

PATIENT
  Sex: Male

DRUGS (11)
  1. INEXIUM [Suspect]
     Indication: MELAENA
     Route: 048
     Dates: start: 20130701, end: 20130703
  2. INEXIUM [Suspect]
     Indication: HELICOBACTER INFECTION
     Route: 048
     Dates: start: 20130701, end: 20130703
  3. INIPOMP [Suspect]
     Indication: HELICOBACTER INFECTION
     Route: 048
     Dates: start: 20130725, end: 20130725
  4. INIPOMP [Suspect]
     Indication: HELICOBACTER INFECTION
     Route: 048
     Dates: start: 20130725, end: 20130725
  5. EUPANTOL [Suspect]
     Indication: MELAENA
     Route: 042
     Dates: start: 20130627, end: 20130701
  6. CLAMOXYL [Concomitant]
     Indication: HELICOBACTER INFECTION
     Route: 048
     Dates: start: 20130629, end: 20130701
  7. CLAMOXYL [Concomitant]
     Indication: HELICOBACTER INFECTION
     Route: 048
     Dates: start: 20130725
  8. DIAMICRON [Concomitant]
     Dosage: LONG LASTING TREATMENT, 60 MG/DAY
  9. HYZAAR [Concomitant]
     Dosage: 50/2.5 MG/DAY
  10. LERCAN [Concomitant]
  11. CRESTOR [Concomitant]
     Route: 048

REACTIONS (2)
  - Bone marrow toxicity [Unknown]
  - Pancytopenia [Unknown]
